FAERS Safety Report 12782786 (Version 1)
Quarter: 2016Q3

REPORT INFORMATION
  Report Type: Other
  Country: US (occurrence: US)
  Receive Date: 20160927
  Receipt Date: 20160927
  Transmission Date: 20161109
  Serious: Yes (Hospitalization, Other)
  Sender: FDA-Public Use
  Company Number: US-SHIRE-US201613014

PATIENT
  Age: 77 Year
  Sex: Female

DRUGS (2)
  1. LIALDA [Suspect]
     Active Substance: MESALAMINE
     Dosage: 2.4 G (TWO 1.2 GRAM TABLETS), 2X/DAY:BID (TWICE DAILY)
     Route: 048
     Dates: start: 20160912, end: 20160918
  2. LIALDA [Suspect]
     Active Substance: MESALAMINE
     Indication: IRRITABLE BOWEL SYNDROME
     Dosage: 1.2 G, UNKNOWN
     Route: 065
     Dates: start: 20160909, end: 20160918

REACTIONS (18)
  - Abnormal loss of weight [Not Recovered/Not Resolved]
  - Insomnia [Not Recovered/Not Resolved]
  - Neck pain [Unknown]
  - Condition aggravated [Not Recovered/Not Resolved]
  - Dysstasia [Not Recovered/Not Resolved]
  - Back pain [Unknown]
  - Asthenia [Not Recovered/Not Resolved]
  - Decreased appetite [Not Recovered/Not Resolved]
  - Inappropriate schedule of drug administration [Recovered/Resolved]
  - Loss of consciousness [Recovered/Resolved]
  - Memory impairment [Not Recovered/Not Resolved]
  - Product use issue [Recovered/Resolved]
  - Night sweats [Unknown]
  - Pain [Not Recovered/Not Resolved]
  - Muscle tightness [Unknown]
  - Muscle spasms [Not Recovered/Not Resolved]
  - Palpitations [Recovered/Resolved]
  - Visual impairment [Unknown]

NARRATIVE: CASE EVENT DATE: 201609
